FAERS Safety Report 7907222-3 (Version None)
Quarter: 2011Q4

REPORT INFORMATION
  Report Type: 
  Country: None (occurrence: None)
  Receive Date: 20111110
  Receipt Date: 20111104
  Transmission Date: 20120403
  Serious: Yes (Other)
  Sender: FDA-Public Use
  Company Number: US-ABBOTT-11P-163-0871936-00

PATIENT
  Age: 68 Year
  Sex: Female

DRUGS (13)
  1. SINGULAIR [Concomitant]
     Indication: HYPERSENSITIVITY
  2. CALCIUM [Concomitant]
     Indication: PRODUCT USED FOR UNKNOWN INDICATION
  3. TOPROL-XL [Concomitant]
     Indication: BLOOD PRESSURE
  4. ZETIA [Concomitant]
     Indication: BLOOD CHOLESTEROL ABNORMAL
  5. OXYCODONE HCL [Concomitant]
     Indication: PAIN
  6. PRAVACHOL [Concomitant]
     Indication: BLOOD CHOLESTEROL ABNORMAL
  7. VERAPAMIL [Concomitant]
     Indication: BLOOD PRESSURE
  8. VITAMIN D [Concomitant]
     Indication: PRODUCT USED FOR UNKNOWN INDICATION
  9. ZYRTEC [Concomitant]
     Indication: HYPERSENSITIVITY
  10. ESTRATEST [Concomitant]
     Indication: HORMONE REPLACEMENT THERAPY
  11. NIASPAN [Concomitant]
     Indication: BLOOD CHOLESTEROL ABNORMAL
  12. HUMIRA [Suspect]
     Indication: RHEUMATOID ARTHRITIS
  13. EVISTA [Concomitant]
     Indication: BONE DISORDER

REACTIONS (5)
  - INCORRECT DOSE ADMINISTERED [None]
  - PNEUMOTHORAX [None]
  - WRONG TECHNIQUE IN DRUG USAGE PROCESS [None]
  - HIATUS HERNIA [None]
  - ARTHRALGIA [None]
